FAERS Safety Report 6902163-2 (Version None)
Quarter: 2010Q3

REPORT INFORMATION
  Report Type: 
  Country: None (occurrence: None)
  Receive Date: 20100803
  Receipt Date: 20100728
  Transmission Date: 20110219
  Serious: Yes (Other)
  Sender: FDA-Public Use
  Company Number: US-MERCK-1007USA03771

PATIENT
  Age: 65 Year
  Sex: Female

DRUGS (12)
  1. JANUMET [Suspect]
     Indication: DIABETES MELLITUS
     Route: 048
     Dates: start: 20080311, end: 20100608
  2. JANUMET [Suspect]
     Route: 048
     Dates: start: 20100609, end: 20100728
  3. ACTOS [Concomitant]
     Route: 048
  4. VYTORIN [Concomitant]
     Route: 048
  5. ALTACE [Concomitant]
     Route: 048
  6. CARDIZEM [Concomitant]
     Route: 048
  7. PROTONIX [Concomitant]
     Route: 048
  8. XANAX [Concomitant]
     Route: 048
  9. ONDANSETRON [Concomitant]
     Route: 048
  10. LEXAPRO [Concomitant]
     Route: 048
  11. CREON [Concomitant]
     Route: 048
  12. FERROUS SULFATE [Concomitant]
     Route: 048

REACTIONS (1)
  - PANCREATIC CARCINOMA [None]
